FAERS Safety Report 8830920 (Version 1)
Quarter: 2012Q4

REPORT INFORMATION
  Report Type: 
  Country: US (occurrence: US)
  Receive Date: 20121008
  Receipt Date: 20121008
  Transmission Date: 20130627
  Serious: Yes (Death, Life-Threatening, Hospitalization, Disabling, Other)
  Sender: FDA-Public Use
  Company Number: US-ACTELION-A-US2012-71997

PATIENT
  Age: 58 Year
  Sex: Male
  Weight: 90.98 kg

DRUGS (12)
  1. VELETRI [Suspect]
     Indication: PORTOPULMONARY HYPERTENSION
     Dosage: 11 ng/kg, per min
     Route: 042
     Dates: start: 20100721, end: 20120805
  2. RIFAXIMIN [Concomitant]
     Dosage: 550 mg, bid
     Route: 048
  3. BENICAR HCT [Concomitant]
     Dosage: UNK
     Route: 048
  4. CETRIZINE [Concomitant]
     Dosage: 10 mg, per day
  5. SPIRONOLACTONE [Concomitant]
     Dosage: 25 mg, per day
     Route: 048
  6. TORSEMIDE [Concomitant]
     Dosage: 5 mg, er day
     Route: 048
  7. LASIX [Concomitant]
     Dosage: 20 mg, as required
  8. CLONAZEPAM [Concomitant]
  9. LORCET 10/650 [Concomitant]
  10. TOPAMAX [Concomitant]
     Dosage: 100 mg, od
     Route: 048
  11. PANTOPRAZOLE [Concomitant]
  12. TADALAFIL [Concomitant]
     Dosage: 40 mg, od
     Route: 048

REACTIONS (12)
  - Acute respiratory failure [Fatal]
  - Hepatic failure [Fatal]
  - Hepatic encephalopathy [Not Recovered/Not Resolved]
  - Seizure like phenomena [Recovered/Resolved]
  - Sinus bradycardia [Unknown]
  - Headache [Fatal]
  - Lethargy [Fatal]
  - Arterial aneurysm repair [Fatal]
  - Mental status changes [Not Recovered/Not Resolved]
  - Atrial fibrillation [Recovering/Resolving]
  - Haemorrhage intracranial [Fatal]
  - Ruptured cerebral aneurysm [Fatal]
